FAERS Safety Report 6710288-X (Version None)
Quarter: 2010Q2

REPORT INFORMATION
  Report Type: 
  Country: None (occurrence: None)
  Receive Date: 20100430
  Receipt Date: 20100416
  Transmission Date: 20101027
  Serious: Yes (Other)
  Sender: FDA-Public Use
  Company Number: 010516

PATIENT
  Age: 35 Year
  Sex: Male

DRUGS (3)
  1. VIMPAT [Suspect]
     Indication: PARTIAL SEIZURES
     Dosage: (MAXIMUM DOSE: 400 MG. INCREASE: 50 MG/WEEK. DOSE AT TIME OF LISTING: 0.)
     Dates: start: 20090123, end: 20091003
  2. CARBAMAZEPINE [Concomitant]
  3. ZONISAMIDE [Concomitant]

REACTIONS (1)
  - VISUAL IMPAIRMENT [None]
